FAERS Safety Report 11252621 (Version 1)
Quarter: 2015Q3

REPORT INFORMATION
  Report Type: Report from Study
  Country: FR (occurrence: FR)
  Receive Date: 20150708
  Receipt Date: 20150708
  Transmission Date: 20151125
  Serious: Yes (Hospitalization, Other)
  Sender: FDA-Public Use
  Company Number: FR-GLAXOSMITHKLINE-FR2015GSK097534

PATIENT
  Age: 66 Year
  Sex: Female

DRUGS (20)
  1. OMEGA-3-ACID ETHYL ESTERS. [Suspect]
     Active Substance: OMEGA-3-ACID ETHYL ESTERS
     Indication: ISCHAEMIC HEART DISEASE PROPHYLAXIS
     Dosage: UNK
     Dates: start: 20090320
  2. TAHOR [Concomitant]
     Active Substance: ATORVASTATIN CALCIUM
  3. CRESTOR [Concomitant]
     Active Substance: ROSUVASTATIN CALCIUM
  4. LEXOMIL [Concomitant]
     Active Substance: BROMAZEPAM
  5. PARACETAMOL [Concomitant]
     Active Substance: ACETAMINOPHEN
  6. ACTONEL [Concomitant]
     Active Substance: RISEDRONATE SODIUM
  7. COVERSYL [Concomitant]
     Active Substance: PERINDOPRIL
  8. PAROXETIN [Concomitant]
     Active Substance: PAROXETINE HYDROCHLORIDE
  9. KARDEGIC [Concomitant]
     Active Substance: ASPIRIN LYSINE
  10. STRESAM [Concomitant]
     Active Substance: ETIFOXINE
  11. PLAVIX [Concomitant]
     Active Substance: CLOPIDOGREL BISULFATE
  12. TEMERIT [Concomitant]
     Active Substance: NEBIVOLOL
  13. EZETROL [Concomitant]
     Active Substance: EZETIMIBE
  14. CARDENSIEL [Concomitant]
     Active Substance: BISOPROLOL FUMARATE
  15. EPINITRIL [Concomitant]
     Active Substance: NITROGLYCERIN
  16. STILNOX [Concomitant]
     Active Substance: ZOLPIDEM TARTRATE
  17. AUGMENTIN [Concomitant]
     Active Substance: AMOXICILLIN\CLAVULANATE POTASSIUM
  18. PREDNISOLONE. [Concomitant]
     Active Substance: PREDNISOLONE
  19. INEXIUM [Concomitant]
     Active Substance: ESOMEPRAZOLE
  20. PERINDOPRIL [Concomitant]
     Active Substance: PERINDOPRIL

REACTIONS (2)
  - Respiratory tract infection [Unknown]
  - Respiratory failure [Unknown]

NARRATIVE: CASE EVENT DATE: 20120307
